FAERS Safety Report 13578479 (Version 2)
Quarter: 2017Q3

REPORT INFORMATION
  Report Type: Report from Study
  Country: CA (occurrence: CA)
  Receive Date: 20170524
  Receipt Date: 20170713
  Transmission Date: 20171127
  Serious: Yes (Other)
  Sender: FDA-Public Use
  Company Number: CA-HLSUS-2017-CA-000498

PATIENT
  Age: 67 Year
  Sex: Male

DRUGS (1)
  1. CLOZARIL [Suspect]
     Active Substance: CLOZAPINE
     Route: 048
     Dates: start: 20151014

REACTIONS (4)
  - Neutropenia [Unknown]
  - Leukocytosis [Unknown]
  - Leukopenia [Unknown]
  - Neutrophilia [Unknown]

NARRATIVE: CASE EVENT DATE: 20170515
